FAERS Safety Report 23538866 (Version 1)
Quarter: 2024Q1

REPORT INFORMATION
  Report Type: Spontaneous
  Country: US (occurrence: US)
  Receive Date: 20240219
  Receipt Date: 20240219
  Transmission Date: 20240410
  Serious: No
  Sender: FDA-Public Use
  Company Number: US-TEVA-VS-3143127

PATIENT
  Age: 67 Year
  Sex: Female
  Weight: 52.2 kg

DRUGS (14)
  1. ALBUTEROL SULFATE [Suspect]
     Active Substance: ALBUTEROL SULFATE
     Indication: Product used for unknown indication
     Route: 065
  2. ALBUTEROL SULFATE [Suspect]
     Active Substance: ALBUTEROL SULFATE
  3. ALBUTEROL SULFATE [Suspect]
     Active Substance: ALBUTEROL SULFATE
  4. ALBUTEROL SULFATE [Suspect]
     Active Substance: ALBUTEROL SULFATE
  5. ACETYLCYSTEINE [Concomitant]
     Active Substance: ACETYLCYSTEINE
  6. MAGNESIUM [Concomitant]
     Active Substance: MAGNESIUM
  7. NEXIUM [Concomitant]
     Active Substance: ESOMEPRAZOLE MAGNESIUM
  8. CELLCEPT [Concomitant]
     Active Substance: MYCOPHENOLATE MOFETIL
  9. OFEV [Concomitant]
     Active Substance: NINTEDANIB
  10. PREDNISONE [Concomitant]
     Active Substance: PREDNISONE
  11. AZITHROMYCIN [Concomitant]
     Active Substance: AZITHROMYCIN
  12. TREPROSTINIL [Suspect]
     Active Substance: TREPROSTINIL
     Indication: Pulmonary arterial hypertension
     Route: 055
  13. TREPROSTINIL [Suspect]
     Active Substance: TREPROSTINIL
     Indication: Pulmonary arterial hypertension
     Route: 055
     Dates: start: 20221201
  14. TYVASO DPI [Suspect]
     Active Substance: TREPROSTINIL
     Indication: Pulmonary arterial hypertension
     Route: 055

REACTIONS (1)
  - Heart rate increased [Unknown]
